FAERS Safety Report 12457111 (Version 5)
Quarter: 2016Q3

REPORT INFORMATION
  Report Type: Report from Study
  Country: US (occurrence: US)
  Receive Date: 20160610
  Receipt Date: 20160830
  Transmission Date: 20161109
  Serious: Yes (Hospitalization)
  Sender: FDA-Public Use
  Company Number: PHHO2014US003212

PATIENT
  Age: 46 Year
  Sex: Female
  Weight: 58.5 kg

DRUGS (6)
  1. ODOMZO [Suspect]
     Active Substance: SONIDEGIB
     Dosage: DOSE BLINDED
     Route: 048
     Dates: end: 20160314
  2. ODOMZO [Suspect]
     Active Substance: SONIDEGIB
     Dosage: DOSE BLINDED
     Route: 048
     Dates: end: 20160422
  3. ODOMZO [Suspect]
     Active Substance: SONIDEGIB
     Dosage: DOSE BLINDED
     Route: 048
     Dates: start: 20140307, end: 20150819
  4. ODOMZO [Suspect]
     Active Substance: SONIDEGIB
     Dosage: DOSE BLINDED
     Route: 048
  5. ODOMZO [Suspect]
     Active Substance: SONIDEGIB
     Dosage: DOSE BLINDED
     Route: 048
     Dates: end: 20160326
  6. ODOMZO [Suspect]
     Active Substance: SONIDEGIB
     Indication: BASAL CELL CARCINOMA
     Dosage: DOSE BLINDED
     Route: 048
     Dates: start: 20120417, end: 20140226

REACTIONS (5)
  - Gastrointestinal pain [Recovered/Resolved]
  - Gastrointestinal pain [Recovered/Resolved]
  - Small intestinal obstruction [Recovered/Resolved with Sequelae]
  - Gastrointestinal pain [Recovered/Resolved]
  - Small intestinal obstruction [Recovered/Resolved]

NARRATIVE: CASE EVENT DATE: 20140227
